FAERS Safety Report 5615819-9 (Version None)
Quarter: 2008Q1

REPORT INFORMATION
  Report Type: 
  Country: None (occurrence: None)
  Receive Date: 20080206
  Receipt Date: 20080130
  Transmission Date: 20080703
  Serious: Yes (Other)
  Sender: FDA-Public Use
  Company Number: BR-ASTRAZENECA-2008UW02238

PATIENT
  Age: 32 Year
  Sex: Female
  Weight: 76 kg

DRUGS (1)
  1. ZOLADEX [Suspect]
     Indication: ENDOMETRIOSIS
     Route: 058
     Dates: start: 20070522

REACTIONS (7)
  - AMENORRHOEA [None]
  - CERVICAL POLYP [None]
  - HEADACHE [None]
  - HOT FLUSH [None]
  - UTERINE POLYP [None]
  - VULVOVAGINAL DRYNESS [None]
  - WEIGHT INCREASED [None]
